FAERS Safety Report 4536441-1 (Version None)
Quarter: 2004Q4

REPORT INFORMATION
  Report Type: 
  Country: None (occurrence: None)
  Receive Date: 20041223
  Receipt Date: 20041028
  Transmission Date: 20050328
  Serious: No
  Sender: FDA-Public Use
  Company Number: US-GLAXOSMITHKLINE-A0531743A

PATIENT
  Sex: Male

DRUGS (3)
  1. FLONASE [Suspect]
     Indication: RHINITIS
     Dosage: 1SPR TWICE PER DAY
     Route: 045
     Dates: start: 19990101
  2. ZOCOR [Concomitant]
  3. METOPROLOL [Concomitant]

REACTIONS (2)
  - DRUG INEFFECTIVE [None]
  - PHARMACEUTICAL PRODUCT COMPLAINT [None]
